FAERS Safety Report 20170642 (Version 2)
Quarter: 2022Q1

REPORT INFORMATION
  Report Type: Other
  Country: US (occurrence: None)
  Receive Date: 20211210
  Receipt Date: 20220131
  Transmission Date: 20220423
  Serious: Yes (Hospitalization)
  Sender: FDA-Public Use
  Company Number: US-ROCHE-2970280

PATIENT
  Age: 65 Year
  Sex: Female
  Weight: 64.468 kg

DRUGS (2)
  1. OCREVUS [Suspect]
     Active Substance: OCRELIZUMAB
     Indication: Relapsing-remitting multiple sclerosis
     Dosage: THEN 600 MG ONCE IN 6 MONTHS?THE DATE OF LAST OCREVUS TREATMENT IS RECORDED AS: 15/JUN/2021.
     Route: 042
     Dates: start: 20180621
  2. ELIQUIS [Concomitant]
     Active Substance: APIXABAN
     Route: 065
     Dates: start: 2021

REACTIONS (6)
  - COVID-19 [Unknown]
  - Atrial fibrillation [Not Recovered/Not Resolved]
  - Peroneal nerve palsy [Not Recovered/Not Resolved]
  - Investigation abnormal [Unknown]
  - Weight decreased [Unknown]
  - Antibody test negative [Not Recovered/Not Resolved]

NARRATIVE: CASE EVENT DATE: 20210812
